FAERS Safety Report 9282759 (Version 1)
Quarter: 2013Q2

REPORT INFORMATION
  Report Type: Report from Study
  Country: TH (occurrence: TH)
  Receive Date: 20130510
  Receipt Date: 20130510
  Transmission Date: 20140414
  Serious: Yes (Hospitalization)
  Sender: FDA-Public Use
  Company Number: PHHY2013TH045519

PATIENT
  Age: 66 Year
  Sex: Female

DRUGS (2)
  1. ZOMETA [Suspect]
     Indication: METASTASES TO BONE
     Dosage: 4 MG, EVERY MONTH
     Route: 041
  2. ZOMETA [Suspect]
     Dosage: 4 MG,EVERY 3 MONTH
     Route: 041

REACTIONS (6)
  - Pulmonary oedema [Recovered/Resolved]
  - Dry throat [Unknown]
  - Thirst [Unknown]
  - Toothache [Recovered/Resolved]
  - Sensitivity of teeth [Unknown]
  - Cough [Unknown]
